FAERS Safety Report 23509955 (Version 4)
Quarter: 2024Q1

REPORT INFORMATION
  Report Type: Spontaneous
  Country: US (occurrence: US)
  Receive Date: 20240211
  Receipt Date: 20240313
  Transmission Date: 20240410
  Serious: No
  Sender: FDA-Public Use
  Company Number: US-TORRENT-00013405

PATIENT
  Sex: Female

DRUGS (3)
  1. DAPSONE [Suspect]
     Active Substance: DAPSONE
     Indication: Acne
     Dosage: UNKNOWN
     Route: 065
     Dates: start: 20240128
  2. CLARITIN [Concomitant]
     Active Substance: LORATADINE
     Indication: Product used for unknown indication
     Dosage: UNKNOWN
     Route: 065
  3. SEYSARA [Concomitant]
     Active Substance: SARECYCLINE HYDROCHLORIDE
     Indication: Acne
     Route: 048

REACTIONS (6)
  - Erythema [Unknown]
  - Product substitution issue [Unknown]
  - Product physical issue [Unknown]
  - Product quality issue [Unknown]
  - Skin exfoliation [Unknown]
  - Skin irritation [Unknown]
